FAERS Safety Report 8871608 (Version 1)
Quarter: 2012Q4

REPORT INFORMATION
  Report Type: Spontaneous
  Country: US (occurrence: None)
  Receive Date: 20121026
  Receipt Date: 20121026
  Transmission Date: 20130627
  Serious: No
  Sender: FDA-Public Use
  Company Number: None

PATIENT
  Age: 53 Year
  Sex: Male
  Weight: 135.4 kg

DRUGS (1)
  1. OXALIPLATIN [Suspect]
     Indication: COLON CANCER
     Dates: start: 20121004, end: 20121005

REACTIONS (9)
  - Dysphonia [None]
  - Muscle spasms [None]
  - Muscle twitching [None]
  - Paraesthesia [None]
  - Dizziness [None]
  - Cough [None]
  - Abasia [None]
  - Myalgia [None]
  - Dysphagia [None]
